FAERS Safety Report 8827773 (Version 3)
Quarter: 2012Q4

REPORT INFORMATION
  Report Type: 
  Country: US (occurrence: US)
  Receive Date: 20121005
  Receipt Date: 20121101
  Transmission Date: 20130627
  Serious: Yes (Life-Threatening, Hospitalization)
  Sender: FDA-Public Use
  Company Number: US-PFIZER INC-2012244246

PATIENT
  Age: 15 Year
  Sex: Female
  Weight: 53.3 kg

DRUGS (3)
  1. DESVENLAFAXINE SUCCINATE MONOHYDRATE [Suspect]
     Indication: MAJOR DEPRESSIVE DISORDER NOS
     Dosage: 25 mg, 1x/day
     Route: 048
     Dates: start: 20120910, end: 20120927
  2. RANITIDINE [Concomitant]
     Indication: GERD
     Dosage: UNK
     Dates: start: 20120903
  3. MIRCETTE [Concomitant]
     Indication: ORAL CONTRACEPTIVE
     Dosage: UNK
     Dates: start: 20120708

REACTIONS (1)
  - Suicide attempt [Recovered/Resolved]
